FAERS Safety Report 8835534 (Version 2)
Quarter: 2012Q4

REPORT INFORMATION
  Report Type: 
  Country: GB (occurrence: GB)
  Receive Date: 20121011
  Receipt Date: 20121129
  Transmission Date: 20130627
  Serious: Yes (Other)
  Sender: FDA-Public Use
  Company Number: PHFR2012GB005333

PATIENT
  Age: 76 Year
  Sex: Male

DRUGS (9)
  1. NILOTINIB [Suspect]
     Indication: CHRONIC MYELOID LEUKAEMIA
     Dosage: 150 mg, BID
  2. NILOTINIB [Suspect]
     Dosage: 600 mg, QD
     Route: 048
     Dates: start: 20120802, end: 20120818
  3. WARFARIN [Concomitant]
     Indication: ATRIAL FIBRILLATION
     Dosage: 3 mg, QD
     Dates: start: 20120723
  4. LISINOPRIL [Concomitant]
     Indication: HYPERTENSION
     Dosage: 10 mg, QD
     Dates: start: 20081027
  5. OMEPRAZOLE [Concomitant]
     Indication: GASTROOESOPHAGEAL REFLUX DISEASE
     Dosage: 20 mg, QD
     Dates: start: 20090128
  6. GLIMEPIRIDE [Concomitant]
     Indication: TYPE 2 DIABETES MELLITUS
     Dosage: 1 mg, QD
     Dates: start: 20070822
  7. AMLODIPINE [Concomitant]
     Indication: HYPERTENSION
     Dosage: 10 mg, QD
     Dates: start: 20070504
  8. SIMVASTATIN [Concomitant]
     Dosage: 20 mg, QD
     Dates: start: 20070504
  9. METFORMIN [Concomitant]
     Dosage: 2 g, QD
     Dates: start: 20070504

REACTIONS (6)
  - Dyspnoea [Recovered/Resolved]
  - Fatigue [Recovered/Resolved]
  - Incorrect dose administered [Unknown]
  - Chest discomfort [Unknown]
  - Cough [Unknown]
  - Malaise [Recovered/Resolved]
